FAERS Safety Report 13937616 (Version 1)
Quarter: 2017Q3

REPORT INFORMATION
  Report Type: Spontaneous
  Country: CN (occurrence: CN)
  Receive Date: 20170905
  Receipt Date: 20170905
  Transmission Date: 20171127
  Serious: Yes (Hospitalization, Other)
  Sender: FDA-Public Use
  Company Number: CN-PFIZER INC-2017379518

PATIENT
  Age: 81 Year
  Sex: Male

DRUGS (2)
  1. CARBAMAZEPINE. [Interacting]
     Active Substance: CARBAMAZEPINE
     Indication: EPILEPSY
     Dosage: 400 MG, 2X/DAY
     Route: 048
     Dates: start: 20131009, end: 20170515
  2. NORVASC [Suspect]
     Active Substance: AMLODIPINE BESYLATE
     Indication: HYPERTENSION
     Dosage: 5 MG, 1X/DAY
     Route: 048
     Dates: start: 20160907, end: 20170515

REACTIONS (16)
  - Platelet count increased [Unknown]
  - Blood glucose increased [Unknown]
  - Haemoglobin decreased [Unknown]
  - Fibrin D dimer increased [Unknown]
  - Myocardial necrosis marker increased [Unknown]
  - Discomfort [Unknown]
  - Cerebral haemorrhage [Unknown]
  - Dehydration [Unknown]
  - Neuropathy peripheral [Unknown]
  - Drug interaction [Unknown]
  - General physical health deterioration [Unknown]
  - Depressed mood [Unknown]
  - Neutrophil count increased [Unknown]
  - Drug ineffective [Unknown]
  - Intracranial pressure increased [Unknown]
  - Somnolence [Unknown]

NARRATIVE: CASE EVENT DATE: 20170515
